FAERS Safety Report 6905100-X (Version None)
Quarter: 2010Q3

REPORT INFORMATION
  Report Type: 
  Country: None (occurrence: None)
  Receive Date: 20100804
  Receipt Date: 20090922
  Transmission Date: 20110219
  Serious: No
  Sender: FDA-Public Use
  Company Number: US-PFIZER INC-2009233600

PATIENT
  Sex: Female
  Weight: 85.7 kg

DRUGS (8)
  1. LYRICA [Suspect]
     Indication: FIBROMYALGIA
     Dosage: 25 MG, 1X/DAY
     Dates: start: 20090101, end: 20090607
  2. TRAMADOL HCL [Suspect]
     Dosage: 50 MG, UNK
  3. PILOCARPINE [Concomitant]
     Dosage: UNK
  4. SOMA [Concomitant]
     Dosage: UNK
  5. REGLAN [Concomitant]
     Dosage: UNK
  6. ESTROGEN NOS [Concomitant]
     Dosage: UNK
  7. PROGESTERONE [Concomitant]
     Dosage: UNK
  8. XANAX [Concomitant]
     Dosage: UNK

REACTIONS (12)
  - ADRENAL DISORDER [None]
  - DEHYDROEPIANDROSTERONE DECREASED [None]
  - FATIGUE [None]
  - FIBROMYALGIA [None]
  - FOOD ALLERGY [None]
  - HOT FLUSH [None]
  - HYPERHIDROSIS [None]
  - INSOMNIA [None]
  - PROGESTERONE DECREASED [None]
  - VISION BLURRED [None]
  - VISUAL ACUITY REDUCED [None]
  - WEIGHT INCREASED [None]
